FAERS Safety Report 8291314-6 (Version None)
Quarter: 2012Q2

REPORT INFORMATION
  Report Type: 
  Country: None (occurrence: None)
  Receive Date: 20120417
  Receipt Date: 20120412
  Transmission Date: 20120825
  Serious: Yes (Hospitalization)
  Sender: FDA-Public Use
  Company Number: US-GLAXOSMITHKLINE-A0790873A

PATIENT
  Age: 66 Year
  Sex: Male
  Weight: 122.7 kg

DRUGS (1)
  1. AVANDIA [Suspect]
     Indication: TYPE 2 DIABETES MELLITUS
     Route: 048
     Dates: start: 20040101, end: 20070701

REACTIONS (3)
  - ATRIAL FIBRILLATION [None]
  - CHEST PAIN [None]
  - MYOCARDIAL INFARCTION [None]
